FAERS Safety Report 4506374-5 (Version None)
Quarter: 2004Q4

REPORT INFORMATION
  Report Type: 
  Country: None (occurrence: None)
  Receive Date: 20041025
  Receipt Date: 20030903
  Transmission Date: 20050328
  Serious: Yes (Hospitalization)
  Sender: FDA-Public Use
  Company Number: US-JNJFOC-20030602938

PATIENT
  Age: 50 Year
  Sex: Female

DRUGS (4)
  1. REMICADE [Suspect]
     Indication: RHEUMATOID ARTHRITIS
     Dosage: INTRAVENOUS
     Route: 042
     Dates: start: 20030525
  2. METHOTREXATE SODIUM [Concomitant]
  3. ANTI-INFLAMMATORY (ANTIINFLAMMATORY/ANTIRHEUMATIC PRODUCTS) [Concomitant]
  4. NAPROSYN [Concomitant]

REACTIONS (1)
  - ARTHRITIS BACTERIAL [None]
